FAERS Safety Report 8835157 (Version 3)
Quarter: 2013Q2

REPORT INFORMATION
  Report Type: Spontaneous
  Country: JP (occurrence: JP)
  Receive Date: 20121011
  Receipt Date: 20130523
  Transmission Date: 20140414
  Serious: Yes (Death, Life-Threatening)
  Sender: FDA-Public Use
  Company Number: JP-PFIZER INC-2012249352

PATIENT
  Age: 9 Year
  Sex: Male
  Weight: 40 kg

DRUGS (13)
  1. DAUNOMYCIN [Suspect]
     Indication: PRECURSOR B-LYMPHOBLASTIC LYMPHOMA
     Dosage: 40 MG/M2 (50 MG), CYCLIC, ON DAYS 8, 15 AND 22
     Route: 041
     Dates: start: 20080701, end: 20080701
  2. DAUNOMYCIN [Suspect]
     Dosage: 40 MG/M2 (50 MG), CYCLIC, ON DAYS 8, 15 AND 22
     Route: 041
     Dates: start: 20080708, end: 20080708
  3. DAUNOMYCIN [Suspect]
     Dosage: 40 MG/M2 (50 MG), CYCLIC, ON DAYS 8, 15 AND 22
     Route: 041
     Dates: start: 20080715, end: 20080715
  4. CYTARABINE [Suspect]
     Indication: PRECURSOR B-LYMPHOBLASTIC LYMPHOMA
     Dosage: 25 MG, CYCLIC, ON DAYS 1, 15 AND 29
     Route: 037
  5. METHOTREXATE SODIUM [Suspect]
     Indication: PRECURSOR B-LYMPHOBLASTIC LYMPHOMA
     Dosage: 12.5 MG, CYCLIC, ON DAYS 1, 15 AND 29
     Route: 037
  6. PREDONINE [Suspect]
     Indication: PRECURSOR B-LYMPHOBLASTIC LYMPHOMA
     Dosage: 60 MG/M2 (75 MG), 1X/DAY, FOR 5 WEEKS
     Route: 048
     Dates: start: 20080624, end: 20080722
  7. ONCOVIN [Suspect]
     Indication: PRECURSOR B-LYMPHOBLASTIC LYMPHOMA
     Dosage: 1.5 MG/M2 (1.9 MG), CYCLIC, ON DAYS 8, 15, 22 AND 29
     Route: 042
     Dates: start: 20080701, end: 20080701
  8. ONCOVIN [Suspect]
     Dosage: 1.5 MG/M2 (1.9 MG), CYCLIC, ON DAYS 8, 15, 22 AND 29
     Route: 042
     Dates: start: 20080708, end: 20080708
  9. ONCOVIN [Suspect]
     Dosage: 1.5 MG/M2 (1.9 MG), CYCLIC, ON DAYS 8, 15, 22 AND 29
     Route: 042
     Dates: start: 20080715, end: 20080715
  10. ONCOVIN [Suspect]
     Dosage: 1.5 MG/M2 (1.9 MG), CYCLIC, ON DAYS 8, 15, 22 AND 29
     Route: 042
     Dates: start: 20080722, end: 20080722
  11. ENDOXAN [Suspect]
     Indication: PRECURSOR B-LYMPHOBLASTIC LYMPHOMA
     Dosage: 1000 MG/M2 (1.3 G), CYCLIC, ON DAY 8
     Route: 041
     Dates: start: 20080701, end: 20080701
  12. LEUNASE [Suspect]
     Indication: PRECURSOR B-LYMPHOBLASTIC LYMPHOMA
     Dosage: 6000 U/M2 (7500 U), CYCLIC, ON DAYS 9, 11, 13, 16, 18, 20, 23, 25 AND 27
     Route: 041
     Dates: start: 20080702, end: 20080720
  13. HYDROCORTISONE [Concomitant]
     Indication: PRECURSOR B-LYMPHOBLASTIC LYMPHOMA
     Dosage: 25 MG, CYCLIC, ON DAYS 1, 15 AND 29
     Route: 037

REACTIONS (8)
  - Cerebral haemorrhage [Fatal]
  - Venoocclusive liver disease [Not Recovered/Not Resolved]
  - Neuropathy peripheral [None]
  - Thrombocytopenia [None]
  - Transfusion reaction [None]
  - Bradycardia [None]
  - Brain herniation [None]
  - Respiratory failure [None]
